FAERS Safety Report 24403524 (Version 1)
Quarter: 2024Q4

REPORT INFORMATION
  Report Type: Spontaneous
  Country: JP (occurrence: JP)
  Receive Date: 20241007
  Receipt Date: 20241007
  Transmission Date: 20250114
  Serious: Yes (Other)
  Sender: ELI LILLY AND CO
  Company Number: JP-ELI_LILLY_AND_COMPANY-JP202410000526

PATIENT
  Age: 17 Year
  Sex: Female
  Weight: 45 kg

DRUGS (3)
  1. STRATTERA [Suspect]
     Active Substance: ATOMOXETINE HYDROCHLORIDE
     Indication: Attention deficit hyperactivity disorder
     Dosage: 5 MG, UNKNOWN
  2. ROZEREM [Concomitant]
     Active Substance: RAMELTEON
  3. MELATOBEL [Concomitant]

REACTIONS (4)
  - Hyperventilation [Unknown]
  - Loss of consciousness [Unknown]
  - Orthostatic intolerance [Not Recovered/Not Resolved]
  - Decreased appetite [Unknown]

NARRATIVE: CASE EVENT DATE: 20240101
